FAERS Safety Report 6758894-0 (Version None)
Quarter: 2010Q2

REPORT INFORMATION
  Report Type: 
  Country: None (occurrence: None)
  Receive Date: 20100607
  Receipt Date: 20100526
  Transmission Date: 20101027
  Serious: Yes (Other)
  Sender: FDA-Public Use
  Company Number: PHHY2010JP17834

PATIENT
  Sex: Female
  Weight: 52 kg

DRUGS (3)
  1. VOLTAREN [Suspect]
     Indication: PERIARTHRITIS
     Dosage: 25 MG DAILY
     Route: 048
     Dates: start: 20100312, end: 20100316
  2. MERCAZOLE [Concomitant]
     Indication: HYPERTHYROIDISM
     Dosage: 15 MG, UNK
     Route: 048
  3. MERCAZOLE [Concomitant]
     Dosage: 5 MG, UNK
     Route: 048
     Dates: start: 20000502

REACTIONS (12)
  - ALANINE AMINOTRANSFERASE INCREASED [None]
  - BASEDOW'S DISEASE [None]
  - BLOOD ALKALINE PHOSPHATASE INCREASED [None]
  - BLOOD THYROID STIMULATING HORMONE DECREASED [None]
  - CONCOMITANT DISEASE AGGRAVATED [None]
  - DYSPHAGIA [None]
  - DYSPNOEA [None]
  - GOITRE [None]
  - OEDEMA PERIPHERAL [None]
  - THYROID DISORDER [None]
  - THYROXINE FREE INCREASED [None]
  - TRI-IODOTHYRONINE FREE INCREASED [None]
